FAERS Safety Report 9695129 (Version 2)
Quarter: 2013Q4

REPORT INFORMATION
  Report Type: Spontaneous
  Country: DE (occurrence: DE)
  Receive Date: 20131119
  Receipt Date: 20131119
  Transmission Date: 20140711
  Serious: Yes (Death, Hospitalization)
  Sender: FDA-Public Use
  Company Number: DE-JNJFOC-20130500323

PATIENT
  Age: 73 Year
  Sex: Male
  Weight: 78 kg

DRUGS (13)
  1. XARELTO [Suspect]
     Indication: CEREBROVASCULAR ACCIDENT PROPHYLAXIS
     Route: 048
     Dates: start: 20121008, end: 20130213
  2. XARELTO [Suspect]
     Indication: ATRIAL FIBRILLATION
     Route: 048
     Dates: start: 20121008, end: 20130213
  3. FALITHROM [Concomitant]
     Route: 065
  4. ASS [Concomitant]
     Route: 065
     Dates: end: 20130118
  5. ALLOPURINOL [Concomitant]
     Route: 065
  6. BISOPROLOL [Concomitant]
     Route: 065
  7. SPIRONOLACTONE [Concomitant]
     Route: 065
  8. PANTOPRAZOLE [Concomitant]
     Route: 065
  9. TORASEMID [Concomitant]
     Route: 065
  10. OXIS [Concomitant]
     Route: 065
  11. KARVEA [Concomitant]
     Route: 065
  12. DIGITOXIN [Concomitant]
     Route: 065
  13. IRON [Concomitant]
     Route: 065

REACTIONS (13)
  - Cerebral haemorrhage [Fatal]
  - Subdural haematoma [Unknown]
  - Hemiparesis [Unknown]
  - Convulsion [Unknown]
  - Pneumonia [Unknown]
  - Renal failure acute [Unknown]
  - Sepsis [Unknown]
  - Aphasia [Unknown]
  - Disturbance in attention [Unknown]
  - Respiratory failure [Unknown]
  - Asthenia [Unknown]
  - Haematoma [Unknown]
  - Epistaxis [Unknown]
